FAERS Safety Report 21159637 (Version 1)
Quarter: 2022Q3

REPORT INFORMATION
  Report Type: Spontaneous
  Country: US (occurrence: None)
  Receive Date: 20220801
  Receipt Date: 20220801
  Transmission Date: 20221026
  Serious: Yes (Death)
  Sender: FDA-Public Use
  Company Number: None

PATIENT
  Age: 54 Year
  Sex: Female

DRUGS (1)
  1. IBRANCE [Suspect]
     Active Substance: PALBOCICLIB
     Indication: Breast cancer
     Dosage: 125MG DAILY X 21 D OFF 7D PRA;
     Route: 048
     Dates: start: 20220725, end: 20220725

REACTIONS (1)
  - Disease progression [None]

NARRATIVE: CASE EVENT DATE: 20220725
